FAERS Safety Report 7243235-5 (Version None)
Quarter: 2011Q1

REPORT INFORMATION
  Report Type: 
  Country: None (occurrence: None)
  Receive Date: 20110125
  Receipt Date: 20110112
  Transmission Date: 20110831
  Serious: Yes (Death)
  Sender: FDA-Public Use
  Company Number: ID-ROCHE-753030

PATIENT
  Age: 14 Year
  Sex: Female

DRUGS (6)
  1. AMPICILLIN AND SULBACTAM [Concomitant]
     Dates: start: 20090120
  2. METHYLPREDNISOLONE [Concomitant]
     Dates: start: 20090120, end: 20090121
  3. OSELTAMIVIR [Suspect]
     Indication: AVIAN INFLUENZA
     Route: 065
     Dates: start: 20090120, end: 20090120
  4. OSELTAMIVIR [Suspect]
     Route: 065
     Dates: start: 20090121, end: 20090121
  5. CEFUROXIME [Concomitant]
     Dates: start: 20090120
  6. CEFTRIAXONE SODIUM [Suspect]
     Route: 065
     Dates: start: 20090120

REACTIONS (1)
  - ACUTE RESPIRATORY DISTRESS SYNDROME [None]
